FAERS Safety Report 7318918-9 (Version None)
Quarter: 2011Q1

REPORT INFORMATION
  Report Type: 
  Country: None (occurrence: None)
  Receive Date: 20110228
  Receipt Date: 20110221
  Transmission Date: 20110831
  Serious: Yes (Other)
  Sender: FDA-Public Use
  Company Number: US-ELI_LILLY_AND_COMPANY-US200803000693

PATIENT
  Sex: Male

DRUGS (2)
  1. HUMALOG [Suspect]
     Indication: DIABETES MELLITUS
     Dosage: UNK, AS NEEDED
  2. LANTUS [Concomitant]
     Dosage: 20 U, EACH EVENING

REACTIONS (4)
  - VISUAL IMPAIRMENT [None]
  - METABOLIC DISORDER [None]
  - WRONG TECHNIQUE IN DRUG USAGE PROCESS [None]
  - BLINDNESS [None]
